FAERS Safety Report 4520316-8 (Version None)
Quarter: 2004Q4

REPORT INFORMATION
  Report Type: 
  Country: None (occurrence: None)
  Receive Date: 20041203
  Receipt Date: 20041126
  Transmission Date: 20050328
  Serious: Yes (Hospitalization)
  Sender: FDA-Public Use
  Company Number: FRP04001000

PATIENT
  Age: 48 Year
  Sex: Female
  Weight: 68 kg

DRUGS (6)
  1. ACTONEL [Suspect]
     Dosage: 35  MG, 1/WEEK, ORAL
     Route: 048
     Dates: start: 20040714, end: 20041027
  2. AZATHIOPRINE [Suspect]
     Indication: POLYARTERITIS NODOSA
     Dosage: 150 MG, DAILY, ORAL
     Route: 048
     Dates: start: 20040712, end: 20040803
  3. CACIT 1000 (CALCIUM CARBONATE) EFFERVESCENT TABLET [Concomitant]
  4. POTASSIUM CHLORIDE [Concomitant]
  5. SOLU-MEDROL [Concomitant]
  6. PREDNISONE [Concomitant]

REACTIONS (4)
  - ALANINE AMINOTRANSFERASE INCREASED [None]
  - ASPARTATE AMINOTRANSFERASE INCREASED [None]
  - GAMMA-GLUTAMYLTRANSFERASE INCREASED [None]
  - INFLAMMATION [None]
